FAERS Safety Report 5106895-0 (Version None)
Quarter: 2006Q3

REPORT INFORMATION
  Report Type: 
  Country: None (occurrence: None)
  Receive Date: 20060913
  Receipt Date: 20060825
  Transmission Date: 20061208
  Serious: Yes (Other)
  Sender: FDA-Public Use
  Company Number: US200608006010

PATIENT
  Sex: Female

DRUGS (5)
  1. FORTEO [Suspect]
     Indication: OSTEOPOROSIS
     Dates: start: 20060501
  2. XANAX [Concomitant]
  3. HYDROMORPHONE HCL [Concomitant]
  4. PREDNISONE [Concomitant]
  5. FORTEO [Concomitant]

REACTIONS (3)
  - LUNG NEOPLASM MALIGNANT [None]
  - LYMPH NODE CANCER METASTATIC [None]
  - PHARMACEUTICAL PRODUCT COMPLAINT [None]
